FAERS Safety Report 19206144 (Version 1)
Quarter: 2021Q2

REPORT INFORMATION
  Report Type: Spontaneous
  Country: US (occurrence: US)
  Receive Date: 20210503
  Receipt Date: 20210503
  Transmission Date: 20210717
  Serious: No
  Sender: FDA-Public Use
  Company Number: US-SA-2021SA135238

PATIENT
  Sex: Female

DRUGS (2)
  1. XYZAL ALLERGY 24HR [Suspect]
     Active Substance: LEVOCETIRIZINE DIHYDROCHLORIDE
     Route: 065
  2. CLARITIN [Concomitant]
     Active Substance: LORATADINE

REACTIONS (3)
  - Sneezing [Unknown]
  - Therapeutic product effect decreased [Unknown]
  - Eye pruritus [Unknown]
